FAERS Safety Report 16999905 (Version 1)
Quarter: 2019Q4

REPORT INFORMATION
  Report Type: Spontaneous
  Country: US (occurrence: US)
  Receive Date: 20191106
  Receipt Date: 20191106
  Transmission Date: 20200122
  Serious: No
  Sender: FDA-Public Use
  Company Number: US-VERTEX PHARMACEUTICALS-2019-010384

PATIENT
  Sex: Female

DRUGS (7)
  1. VITAMIN D3 [Concomitant]
     Active Substance: CHOLECALCIFEROL
     Dosage: UNK
     Route: 048
  2. PULMOZYME [Concomitant]
     Active Substance: DORNASE ALFA
     Dosage: UNK
     Route: 048
  3. CREON [Concomitant]
     Active Substance: PANCRELIPASE AMYLASE\PANCRELIPASE LIPASE\PANCRELIPASE PROTEASE
     Dosage: UNK
     Route: 048
  4. PRILOSEC [Concomitant]
     Active Substance: OMEPRAZOLE MAGNESIUM
     Dosage: 1 DOSAGE FORM
     Route: 048
  5. ALBUTEROL SULFATE. [Concomitant]
     Active Substance: ALBUTEROL SULFATE
     Dosage: UNK
  6. SYMDEKO [Suspect]
     Active Substance: IVACAFTOR\TEZACAFTOR
     Indication: CYSTIC FIBROSIS
     Dosage: 100MG TEZACAFTOR/150MG IVACAFTOR AM; 150MG IVACAFTOR PM
     Route: 048
  7. HYPERTONIC SALINE SOLUTION [Concomitant]
     Active Substance: SODIUM CHLORIDE
     Dosage: UNK
     Route: 055

REACTIONS (1)
  - Infection [Not Recovered/Not Resolved]

NARRATIVE: CASE EVENT DATE: 2019
